FAERS Safety Report 4934277-0 (Version None)
Quarter: 2006Q1

REPORT INFORMATION
  Report Type: 
  Country: None (occurrence: None)
  Receive Date: 20060307
  Receipt Date: 20060224
  Transmission Date: 20060701
  Serious: Yes (Other)
  Sender: FDA-Public Use
  Company Number: FR-ROCHE-437980

PATIENT
  Age: 58 Year
  Sex: Male
  Weight: 85 kg

DRUGS (3)
  1. INTERFERON ALFA-2A [Suspect]
     Indication: METASTATIC RENAL CELL CARCINOMA
     Route: 058
     Dates: start: 20041027
  2. BLINDED BEVACIZUMAB [Suspect]
     Indication: METASTATIC RENAL CELL CARCINOMA
     Route: 042
     Dates: start: 20041027
  3. ALEPSAL [Concomitant]
     Dosage: UNITIL 13 AUG 2005 THE PATIENT RECEIVED 100 MG DAILY, AND FROM 14 AUG 2005 ONGOING THE PATIENT RECE+
     Dates: start: 20050615

REACTIONS (1)
  - PORTAL VEIN THROMBOSIS [None]
